FAERS Safety Report 4327892-9 (Version None)
Quarter: 2004Q1

REPORT INFORMATION
  Report Type: 
  Country: None (occurrence: None)
  Receive Date: 20040325
  Receipt Date: 20040315
  Transmission Date: 20041129
  Serious: Yes (Life-Threatening, Hospitalization)
  Sender: FDA-Public Use
  Company Number: GB-JNJFOC-20040103046

PATIENT
  Age: 67 Year
  Sex: Male

DRUGS (4)
  1. REOPRO [Suspect]
     Indication: ANGIOPLASTY
     Dosage: , 2 IN 1 TOTAL, INTRAVENOUS BOLUS
     Route: 040
     Dates: start: 20040101
  2. CLOPIDOGREL (CLOPIDOGREL) [Concomitant]
  3. ASPIRIN [Concomitant]
  4. HEPARIN [Concomitant]

REACTIONS (5)
  - CARDIAC TAMPONADE [None]
  - INFUSION RELATED REACTION [None]
  - MEDICATION ERROR [None]
  - OVERDOSE [None]
  - PERICARDIAL HAEMORRHAGE [None]
